FAERS Safety Report 23398183 (Version 2)
Quarter: 2024Q1

REPORT INFORMATION
  Report Type: Spontaneous
  Country: US (occurrence: None)
  Receive Date: 20240112
  Receipt Date: 20240130
  Transmission Date: 20240409
  Serious: Yes (Hospitalization, Other)
  Sender: FDA-Public Use
  Company Number: 2024A004542

PATIENT
  Sex: Female

DRUGS (1)
  1. FASLODEX [Suspect]
     Active Substance: FULVESTRANT
     Route: 030

REACTIONS (9)
  - Feeling abnormal [Unknown]
  - Illness [Unknown]
  - Thrombocytopenia [Unknown]
  - Weight abnormal [Unknown]
  - Vomiting [Unknown]
  - Feeding disorder [Unknown]
  - Blood test abnormal [Unknown]
  - Abdominal pain upper [Unknown]
  - Overdose [Unknown]
